FAERS Safety Report 7860220-0 (Version None)
Quarter: 2011Q4

REPORT INFORMATION
  Report Type: 
  Country: None (occurrence: None)
  Receive Date: 20111026
  Receipt Date: 20111013
  Transmission Date: 20120403
  Serious: Yes (Hospitalization)
  Sender: FDA-Public Use
  Company Number: KV201100234

PATIENT
  Sex: Male
  Weight: 3.9 kg

DRUGS (2)
  1. MAKENA [Suspect]
     Indication: MATERNAL EXPOSURE DURING PREGNANCY
     Dates: start: 20110101, end: 20110101
  2. PRENATAL VITAMINS /0159301/ (ASCORBIC ACID, BIOTIN, MINERALS NOS, NICO [Concomitant]

REACTIONS (3)
  - MECONIUM STAIN [None]
  - HYPOGLYCAEMIA NEONATAL [None]
  - MATERNAL DRUGS AFFECTING FOETUS [None]
